FAERS Safety Report 10173748 (Version 1)
Quarter: 2014Q2

REPORT INFORMATION
  Report Type: Spontaneous
  Country: US (occurrence: US)
  Receive Date: 20140515
  Receipt Date: 20140515
  Transmission Date: 20141212
  Serious: Yes (Hospitalization)
  Sender: FDA-Public Use
  Company Number: US-LUNDBECK-DKLU1099900

PATIENT
  Age: 3 Year
  Sex: Male

DRUGS (3)
  1. SABRIL (FOR ORAL SOLUTION) [Suspect]
     Indication: CEREBRAL HAEMORRHAGE
     Dates: start: 20131015
  2. SABRIL (FOR ORAL SOLUTION) [Suspect]
     Indication: STATUS EPILEPTICUS
  3. SABRIL (FOR ORAL SOLUTION) [Suspect]
     Indication: PARTIAL SEIZURES

REACTIONS (2)
  - Epistaxis [Recovered/Resolved]
  - Pneumonia [Recovered/Resolved]
